FAERS Safety Report 5491375-3 (Version None)
Quarter: 2007Q4

REPORT INFORMATION
  Report Type: 
  Country: None (occurrence: None)
  Receive Date: 20071017
  Receipt Date: 20071012
  Transmission Date: 20080405
  Serious: Yes (Death, Hospitalization)
  Sender: FDA-Public Use
  Company Number: TCI2007A05419

PATIENT
  Age: 80 Year
  Sex: Male

DRUGS (9)
  1. LEUPROLIDE ACETATE [Suspect]
     Indication: PROSTATE CANCER STAGE IV
     Dosage: 11.25 MG (11.25 MG, 1 IN 12 WK) SUBCUTAEOUS
     Route: 058
     Dates: start: 20060713, end: 20060713
  2. CASODEX [Concomitant]
  3. OXYCONTIN (OXYCODONE HYDROCHLORIDE) (TABLETS) [Concomitant]
  4. MAGNESIUM OXIDE (PREPARATION FOR ORAL USE (NOS)) [Concomitant]
  5. BUP-4 (PROPIVERINE HYDROCHLORIDE) (TABLETS) [Concomitant]
  6. FERO-GRADUMET (FERROUS SULFATE) (TABLETS) [Concomitant]
  7. DUROTEP PATCH (FENTANLY) (POULTICE OR PATCH) [Concomitant]
  8. ALLELOCK (OLOPATADINE HYDROCHLORIDE) (TABLETS) [Concomitant]
  9. PURSENNID (SENNA ALEXANDRINA LEAF) (TABLETS) [Concomitant]

REACTIONS (4)
  - CONDITION AGGRAVATED [None]
  - DELIRIUM [None]
  - DEMENTIA [None]
  - DISEASE PROGRESSION [None]
